FAERS Safety Report 7140556 (Version 10)
Quarter: 2014Q1

REPORT INFORMATION
  Report Type: Spontaneous
  Country: GB (occurrence: GB)
  Receive Date: 20091006
  Receipt Date: 20140312
  Transmission Date: 20141002
  Serious: Yes (Congenital Anomaly)
  Sender: FDA-Public Use
  Company Number: GB-ROCHE-658530

PATIENT
  Age: 35 Year
  Sex: Female

DRUGS (7)
  1. INVIRASE [Suspect]
     Indication: HIV INFECTION
     Route: 065
  2. COMBIVIR [Suspect]
     Indication: HIV INFECTION
     Dosage: DOSE REPORTED 2DF
     Route: 065
  3. NORVIR [Suspect]
     Indication: HIV INFECTION
     Route: 065
  4. VIRAMUNE [Suspect]
     Indication: HIV INFECTION
     Route: 065
  5. VIRAMUNE [Suspect]
     Route: 065
  6. KIVEXA [Suspect]
     Indication: ANTIVIRAL TREATMENT
     Route: 048
  7. KIVEXA [Suspect]
     Route: 048

REACTIONS (3)
  - Alpha 1 foetoprotein increased [Unknown]
  - Alpha 1 foetoprotein abnormal [Unknown]
  - Normal newborn [Unknown]
